FAERS Safety Report 5326809-8 (Version None)
Quarter: 2007Q2

REPORT INFORMATION
  Report Type: 
  Country: None (occurrence: None)
  Receive Date: 20070516
  Receipt Date: 20070504
  Transmission Date: 20071010
  Serious: Yes (Other)
  Sender: FDA-Public Use
  Company Number: KR-PFIZER INC-2007038161

PATIENT
  Sex: Male

DRUGS (1)
  1. LIPITOR [Suspect]
     Route: 048

REACTIONS (2)
  - HEPATIC STEATOSIS [None]
  - HYPOAESTHESIA [None]
